FAERS Safety Report 5811446-9 (Version None)
Quarter: 2008Q3

REPORT INFORMATION
  Report Type: 
  Country: None (occurrence: None)
  Receive Date: 20080711
  Receipt Date: 20080703
  Transmission Date: 20090109
  Serious: Yes (Disabling)
  Sender: FDA-Public Use
  Company Number: 2008-00491

PATIENT
  Age: 61 Year
  Sex: Male
  Weight: 75 kg

DRUGS (5)
  1. VELCADE [Suspect]
     Indication: MULTIPLE MYELOMA
     Dosage: 1.3 MG/M2
     Dates: start: 20080102, end: 20080130
  2. NEXIUM [Concomitant]
  3. METOPROLOL TARTRATE [Concomitant]
  4. ESOMEPRAZOLE (ESOPRAZOLE) [Concomitant]
  5. PAMIDRONIC ACID (PAMIDRONIC ACID) [Concomitant]

REACTIONS (4)
  - DRUG TOXICITY [None]
  - NEUROTOXICITY [None]
  - OPTIC NEURITIS [None]
  - PAPILLOEDEMA [None]
